FAERS Safety Report 7621743-2 (Version None)
Quarter: 2011Q3

REPORT INFORMATION
  Report Type: 
  Country: None (occurrence: None)
  Receive Date: 20110719
  Receipt Date: 20110715
  Transmission Date: 20111222
  Serious: Yes (Hospitalization, Other)
  Sender: FDA-Public Use
  Company Number: CA-BRISTOL-MYERS SQUIBB COMPANY-15793086

PATIENT
  Age: 41 Year
  Sex: Female

DRUGS (14)
  1. OXYCODONE HCL [Concomitant]
     Dosage: 31MAY11 OXYCODONE CR.
     Dates: start: 20110504
  2. ZOPICLONE [Concomitant]
     Dosage: HS
     Dates: start: 20110522
  3. FENTANYL-100 [Concomitant]
     Dates: start: 20110601
  4. OLANZAPINE [Concomitant]
     Dates: start: 20110531
  5. IBUPROFEN (ADVIL) [Concomitant]
     Dates: start: 20110407
  6. ESOMEPRAZOLE MAGNESIUM [Concomitant]
     Dates: start: 20110522
  7. IPILIMUMAB [Suspect]
     Indication: MALIGNANT MELANOMA
     Dosage: 1DF: 1 DOSE.02JUN11:156MG. INTERRUPTED. NO OF COURSE-2, RESUMED ON 13-JUL-2011.
     Route: 042
     Dates: start: 20110511
  8. METOCLOPRAMIDE [Concomitant]
     Dates: start: 20110531
  9. TYLENOL-500 [Concomitant]
     Dosage: 1 DF : 500MGX2
     Dates: start: 20110301
  10. BUDESONIDE [Concomitant]
     Dates: start: 20110522
  11. GABAPENTIN [Concomitant]
     Dates: start: 20110603
  12. ACETAMINOPHEN [Concomitant]
     Dosage: Q4H
     Dates: start: 20110301
  13. PREDNISONE [Concomitant]
     Dates: start: 20110527
  14. LORAZEPAM [Concomitant]
     Dates: start: 20110530

REACTIONS (5)
  - ABDOMINAL PAIN [None]
  - FATIGUE [None]
  - COLITIS [None]
  - DIARRHOEA [None]
  - NAUSEA [None]
